FAERS Safety Report 10449412 (Version 1)
Quarter: 2014Q3

REPORT INFORMATION
  Report Type: Spontaneous
  Country: US (occurrence: None)
  Receive Date: 20140911
  Receipt Date: 20140911
  Transmission Date: 20150326
  Serious: Yes (Hospitalization)
  Sender: FDA-Public Use
  Company Number: None

PATIENT
  Age: 35 Year
  Sex: Female

DRUGS (4)
  1. CITALOPRAM [Concomitant]
     Active Substance: CITALOPRAM HYDROBROMIDE
  2. QSYMIA [Suspect]
     Active Substance: PHENTERMINE HYDROCHLORIDE\TOPIRAMATE
     Indication: OBESITY
     Dosage: 1 CAPSULE, QD, ORAL
     Route: 048
     Dates: start: 20140709, end: 20140813
  3. METFORMIN [Concomitant]
     Active Substance: METFORMIN HYDROCHLORIDE
  4. ELINEST-28 [Concomitant]

REACTIONS (3)
  - Psychotic disorder [None]
  - Mania [None]
  - Hallucinations, mixed [None]

NARRATIVE: CASE EVENT DATE: 20140809
